FAERS Safety Report 6464599-6 (Version None)
Quarter: 2009Q4

REPORT INFORMATION
  Report Type: 
  Country: None (occurrence: None)
  Receive Date: 20091201
  Receipt Date: 20091117
  Transmission Date: 20100525
  Serious: Yes (Other)
  Sender: FDA-Public Use
  Company Number: JP-MERCK-0911USA04642

PATIENT
  Sex: Female

DRUGS (3)
  1. COZAAR [Suspect]
     Indication: HYPERTENSION
     Route: 048
     Dates: start: 20080101
  2. FOSAMAX [Concomitant]
     Indication: OSTEOPOROSIS
     Route: 048
  3. SOLETON [Concomitant]
     Indication: ARTHRALGIA
     Route: 048

REACTIONS (6)
  - ARTHRALGIA [None]
  - HEADACHE [None]
  - HYPOAESTHESIA [None]
  - MALAISE [None]
  - MUSCULAR WEAKNESS [None]
  - RHABDOMYOLYSIS [None]
